FAERS Safety Report 6336944-3 (Version None)
Quarter: 2009Q3

REPORT INFORMATION
  Report Type: 
  Country: None (occurrence: None)
  Receive Date: 20090901
  Receipt Date: 20090825
  Transmission Date: 20100115
  Serious: Yes (Hospitalization, Other)
  Sender: FDA-Public Use
  Company Number: FR-BAXTER-2009BH013317

PATIENT
  Age: 72 Year
  Sex: Male

DRUGS (1)
  1. ENDOXAN BAXTER [Suspect]
     Indication: PROSTATE CANCER
     Route: 042
     Dates: start: 20090224, end: 20090319

REACTIONS (3)
  - CYSTITIS HAEMORRHAGIC [None]
  - PANCYTOPENIA [None]
  - SEPTIC SHOCK [None]
